FAERS Safety Report 11687932 (Version 2)
Quarter: 2015Q4

REPORT INFORMATION
  Report Type: Spontaneous
  Country: US (occurrence: IT)
  Receive Date: 20151030
  Receipt Date: 20151119
  Transmission Date: 20160304
  Serious: Yes (Hospitalization)
  Sender: FDA-Public Use
  Company Number: IT-FRI-1000080129

PATIENT
  Age: 58 Year
  Sex: Female

DRUGS (9)
  1. OLANZAPINE. [Suspect]
     Active Substance: OLANZAPINE
     Dosage: 20 MG
     Route: 065
  2. VALPROIC ACID. [Concomitant]
     Active Substance: VALPROIC ACID
     Dosage: 300MG+600MG/DAY
  3. OLANZAPINE. [Suspect]
     Active Substance: OLANZAPINE
     Dosage: 5 MG
     Route: 065
  4. DELORAZEPAM [Concomitant]
     Active Substance: DELORAZEPAM
     Dosage: 3MG+2MG PER DAY
  5. OLANZAPINE. [Suspect]
     Active Substance: OLANZAPINE
     Dosage: 1 MG+10MG
     Route: 065
  6. FLUPHENAZINE [Suspect]
     Active Substance: FLUPHENAZINE
     Indication: SCHIZOPHRENIA
     Route: 065
     Dates: end: 201504
  7. ASENAPINE [Suspect]
     Active Substance: ASENAPINE
     Indication: SCHIZOPHRENIA
     Dosage: 5 MG
     Route: 048
     Dates: end: 201504
  8. OLANZAPINE. [Suspect]
     Active Substance: OLANZAPINE
     Dosage: 10 MG
     Route: 065
  9. DELORAZEPAM [Concomitant]
     Active Substance: DELORAZEPAM
     Dosage: 6 MG

REACTIONS (5)
  - Insomnia [Unknown]
  - Off label use [Recovered/Resolved]
  - Increased appetite [Recovered/Resolved]
  - Adverse event [Unknown]
  - Electrocardiogram QT prolonged [Recovered/Resolved]
